FAERS Safety Report 22150417 (Version 3)
Quarter: 2023Q2

REPORT INFORMATION
  Report Type: Spontaneous
  Country: JP (occurrence: JP)
  Receive Date: 20230329
  Receipt Date: 20230524
  Transmission Date: 20230721
  Serious: Yes (Life-Threatening)
  Sender: FDA-Public Use
  Company Number: JP-MYLANLABS-2023M1031338

PATIENT
  Age: 9 Year
  Sex: Male

DRUGS (1)
  1. EPIPEN [Suspect]
     Active Substance: EPINEPHRINE
     Indication: Anaphylactic shock
     Dosage: 0.3 MILLIGRAM, ONCE
     Route: 030

REACTIONS (3)
  - Device failure [Unknown]
  - Needle issue [Unknown]
  - Device use issue [Unknown]
